FAERS Safety Report 9030536 (Version 1)
Quarter: 2013Q1

REPORT INFORMATION
  Report Type: Spontaneous
  Country: US (occurrence: US)
  Receive Date: 20130122
  Receipt Date: 20130122
  Transmission Date: 20140127
  Serious: Yes (Other)
  Sender: FDA-Public Use
  Company Number: US-PFIZER INC-2013024495

PATIENT
  Age: 59 Year
  Sex: Female
  Weight: 76.19 kg

DRUGS (2)
  1. GEODON [Suspect]
     Dosage: 80 MG, 2X/DAY
     Route: 048
     Dates: end: 20130118
  2. ALPRAZOLAM [Concomitant]
     Indication: ANXIETY
     Dosage: UNK

REACTIONS (3)
  - Anxiety [Not Recovered/Not Resolved]
  - Convulsion [Not Recovered/Not Resolved]
  - Depression [Not Recovered/Not Resolved]
